FAERS Safety Report 6252532-1 (Version None)
Quarter: 2009Q2

REPORT INFORMATION
  Report Type: 
  Country: None (occurrence: None)
  Receive Date: 20090629
  Receipt Date: 20090629
  Transmission Date: 20091009
  Serious: Yes (Disabling)
  Sender: FDA-Public Use
  Company Number: None

PATIENT
  Age: 72 Year
  Sex: Female
  Weight: 86.1834 kg

DRUGS (2)
  1. ZICAM COLD REMEDY GEL SWABS [Suspect]
     Indication: BRONCHITIS
     Dosage: 1 SWAB 1 TIME
     Dates: start: 20070101
  2. ZICAM COLD REMEDY GEL SWABS [Suspect]
     Indication: DYSPNOEA
     Dosage: 1 SWAB 1 TIME
     Dates: start: 20070101

REACTIONS (1)
  - ANOSMIA [None]
